FAERS Safety Report 9638678 (Version 2)
Quarter: 2014Q1

REPORT INFORMATION
  Report Type: Spontaneous
  Country: US (occurrence: US)
  Receive Date: 20131022
  Receipt Date: 20140122
  Transmission Date: 20141002
  Serious: No
  Sender: FDA-Public Use
  Company Number: US-BRISTOL-MYERS SQUIBB COMPANY-19344944

PATIENT
  Age: 84 Year
  Sex: Male
  Weight: 93.42 kg

DRUGS (11)
  1. ELIQUIS [Suspect]
     Indication: ATRIAL FIBRILLATION
     Route: 048
     Dates: start: 20130905
  2. ELIQUIS [Suspect]
     Indication: ATRIAL FLUTTER
     Route: 048
     Dates: start: 20130905
  3. FUROSEMIDE [Concomitant]
  4. POTASSIUM [Concomitant]
  5. IRON [Concomitant]
  6. LEVOXYL [Concomitant]
  7. ZANTAC [Concomitant]
  8. ZOLPIDEM [Concomitant]
  9. ADVAIR [Concomitant]
  10. PREDNISONE [Concomitant]
  11. PROAIR HFA [Concomitant]

REACTIONS (3)
  - Flatulence [Unknown]
  - Sleep apnoea syndrome [Unknown]
  - Bronchitis [Unknown]
